FAERS Safety Report 8417205-5 (Version None)
Quarter: 2012Q2

REPORT INFORMATION
  Report Type: 
  Country: None (occurrence: None)
  Receive Date: 20120606
  Receipt Date: 20120529
  Transmission Date: 20120825
  Serious: Yes (Life-Threatening, Hospitalization)
  Sender: FDA-Public Use
  Company Number: JP-CELGENEUS-087-50794-12040729

PATIENT
  Age: 58 Year
  Sex: Male
  Weight: 60 kg

DRUGS (35)
  1. KYTRIL [Concomitant]
     Route: 065
     Dates: start: 20110617, end: 20110621
  2. MAGNESIUM OXIDE [Concomitant]
     Route: 065
     Dates: start: 20110705, end: 20110711
  3. FUNGUARD [Concomitant]
     Route: 065
     Dates: start: 20110804, end: 20110822
  4. MEROPENEM [Concomitant]
     Route: 065
     Dates: start: 20110727, end: 20110815
  5. PREDNISOLONE [Concomitant]
     Route: 065
     Dates: start: 20110813, end: 20110816
  6. PREDNISOLONE [Concomitant]
     Route: 065
     Dates: start: 20110821, end: 20110824
  7. NEOMALLERMIN TR [Concomitant]
     Route: 065
     Dates: start: 20110623, end: 20110702
  8. VANCOMYCIN [Concomitant]
     Route: 065
     Dates: start: 20110626, end: 20110725
  9. FUROSEMIDE [Concomitant]
     Route: 065
  10. DOPAMINE HCL [Concomitant]
     Route: 065
     Dates: start: 20110725, end: 20110730
  11. VIDAZA [Suspect]
     Dosage: 50 MILLIGRAM
     Route: 065
     Dates: start: 20110719, end: 20110722
  12. CONIEL [Concomitant]
     Route: 065
     Dates: start: 20110722
  13. ZOSYN [Concomitant]
     Route: 065
     Dates: start: 20110723, end: 20110723
  14. LANSOPRAZOLE [Concomitant]
     Route: 065
  15. PROMACTA [Concomitant]
     Route: 065
  16. ITRACONAZOLE [Concomitant]
     Route: 065
  17. SLOW-K [Concomitant]
     Route: 065
     Dates: start: 20110622, end: 20110626
  18. SLOW-K [Concomitant]
     Route: 065
     Dates: start: 20110706, end: 20110711
  19. HANP [Concomitant]
     Route: 065
     Dates: start: 20110727, end: 20110727
  20. CATABON [Concomitant]
     Route: 065
     Dates: start: 20110725, end: 20110730
  21. KYTRIL [Concomitant]
     Route: 065
     Dates: start: 20110719, end: 20110722
  22. ACETAMINOPHEN [Concomitant]
     Route: 065
     Dates: start: 20110626, end: 20110711
  23. LASIX [Concomitant]
     Route: 065
     Dates: start: 20110720
  24. MAXIPIME [Concomitant]
     Route: 065
     Dates: start: 20110618, end: 20110723
  25. POTASSIUM CHLORIDE [Concomitant]
     Route: 065
     Dates: start: 20110621, end: 20110622
  26. VENOGLOBULIN [Concomitant]
     Route: 065
     Dates: start: 20110628, end: 20110630
  27. PREDNISOLONE [Concomitant]
     Route: 065
     Dates: start: 20110809, end: 20110812
  28. ARASENA A [Concomitant]
     Route: 065
     Dates: start: 20110615, end: 20110615
  29. ETOPOSIDE [Concomitant]
     Route: 065
     Dates: start: 20110804, end: 20110806
  30. VIDAZA [Suspect]
     Dosage: 75 MILLIGRAM/SQ. METER
     Route: 041
     Dates: start: 20110613, end: 20110621
  31. HICALIQ RF [Concomitant]
     Route: 041
     Dates: start: 20110726, end: 20110815
  32. VALTREX [Concomitant]
     Route: 065
     Dates: start: 20110620, end: 20110626
  33. SOLU-CORTEF [Concomitant]
     Route: 065
     Dates: start: 20110802, end: 20110804
  34. PREDNISOLONE [Concomitant]
     Route: 065
     Dates: start: 20110805, end: 20110808
  35. PREDNISOLONE [Concomitant]
     Route: 065
     Dates: start: 20110817, end: 20110820

REACTIONS (2)
  - OSTEOMYELITIS [None]
  - RENAL FAILURE ACUTE [None]
